FAERS Safety Report 23554108 (Version 2)
Quarter: 2024Q1

REPORT INFORMATION
  Report Type: Spontaneous
  Country: SK (occurrence: SK)
  Receive Date: 20240222
  Receipt Date: 20240308
  Transmission Date: 20240410
  Serious: Yes (Other)
  Sender: FDA-Public Use
  Company Number: SK-Gedeon Richter Plc.-2024_GR_001640

PATIENT
  Age: 29 Year
  Sex: Female

DRUGS (1)
  1. CARIPRAZINE [Suspect]
     Active Substance: CARIPRAZINE
     Indication: Schizophrenia
     Dosage: DOSE WAS INCREASED WITHIN A RAPID TITRATION SCHEME OF ONE WEEK TO 4.5 MG PER DAY
     Route: 065

REACTIONS (2)
  - Hallucination, auditory [Unknown]
  - Akathisia [Unknown]
